FAERS Safety Report 9629781 (Version 2)
Quarter: 2013Q4

REPORT INFORMATION
  Report Type: Report from Study
  Country: CA (occurrence: CA)
  Receive Date: 20131017
  Receipt Date: 20131017
  Transmission Date: 20140711
  Serious: Yes (Hospitalization, Other)
  Sender: FDA-Public Use
  Company Number: CA-JNJFOC-20130817548

PATIENT
  Age: 44 Year
  Sex: Female
  Weight: 100.5 kg

DRUGS (12)
  1. REMICADE [Suspect]
     Indication: COLITIS ULCERATIVE
     Dosage: PATIENT HAD 41 INFUSIONS TO THE TIME OF THIS REPORT.
     Route: 042
  2. REMICADE [Suspect]
     Indication: COLITIS ULCERATIVE
     Route: 042
     Dates: start: 20130903
  3. MORPHINE [Concomitant]
     Route: 048
  4. ALPHA LIPOIC ACID [Concomitant]
     Route: 065
  5. ASACOL [Concomitant]
     Route: 065
  6. CRESTOR [Concomitant]
     Route: 065
  7. TECTA [Concomitant]
     Route: 065
  8. EFFEXOR [Concomitant]
     Route: 065
  9. COVERSYL [Concomitant]
     Route: 065
  10. MULTIVITAMINS [Concomitant]
     Route: 065
  11. OMEGA 3-6-9 [Concomitant]
     Route: 065
  12. FLOVENT [Concomitant]
     Route: 065

REACTIONS (3)
  - Arthralgia [Unknown]
  - Joint swelling [Unknown]
  - Drug effect decreased [Unknown]
